FAERS Safety Report 6828179-2 (Version None)
Quarter: 2010Q3

REPORT INFORMATION
  Report Type: 
  Country: None (occurrence: None)
  Receive Date: 20100708
  Receipt Date: 20100708
  Transmission Date: 20110219
  Serious: Yes (Hospitalization)
  Sender: FDA-Public Use
  Company Number: None

PATIENT
  Age: 28 Year
  Sex: Male
  Weight: 107 kg

DRUGS (1)
  1. FRESINIUS PROPOVEN 10 MG/CC AAP [Suspect]
     Indication: COLONOSCOPY
     Dosage: 180 MG ONCE IV DRIP
     Route: 041

REACTIONS (1)
  - GRAND MAL CONVULSION [None]
